FAERS Safety Report 9067535 (Version 1)
Quarter: 2013Q1

REPORT INFORMATION
  Report Type: Spontaneous
  Country: US (occurrence: US)
  Receive Date: 20130214
  Receipt Date: 20130214
  Transmission Date: 20140127
  Serious: Yes (Other)
  Sender: FDA-Public Use
  Company Number: US-ALLERGAN-1302015US

PATIENT
  Age: 50 Year
  Sex: Male

DRUGS (4)
  1. PREDNISOLONE [Suspect]
     Indication: POSTOPERATIVE CARE
     Dosage: UNK UNK, QID
     Route: 047
  2. TRIMETHOPRIM SULFATE AND POLYMYXIN B SULFATE [Suspect]
     Indication: POSTOPERATIVE CARE
     Route: 047
  3. IBOPAMINE [Suspect]
     Indication: POSTOPERATIVE CARE
     Dosage: UNK UNK, TID
     Route: 047
  4. IBOPAMINE [Suspect]
     Indication: HYPOTONY OF EYE

REACTIONS (3)
  - Corneal epithelium defect [Not Recovered/Not Resolved]
  - Corneal deposits [Not Recovered/Not Resolved]
  - Corneal infection [Recovering/Resolving]
